FAERS Safety Report 12933138 (Version 4)
Quarter: 2017Q3

REPORT INFORMATION
  Report Type: Spontaneous
  Country: JP (occurrence: JP)
  Receive Date: 20161111
  Receipt Date: 20170728
  Transmission Date: 20171127
  Serious: Yes (Other)
  Sender: FDA-Public Use
  Company Number: JP-ABBVIE-16P-087-1777569-00

PATIENT
  Age: 11 Year
  Sex: Male
  Weight: 23.2 kg

DRUGS (1)
  1. LEUPRORELIN ACETATE [Suspect]
     Active Substance: LEUPROLIDE ACETATE
     Indication: PRECOCIOUS PUBERTY
     Dosage: 1.88 MG, Q4WEEKS
     Route: 058
     Dates: start: 20141111, end: 20160728

REACTIONS (3)
  - Cytopenia [Not Recovered/Not Resolved]
  - Cytogenetic abnormality [Unknown]
  - Myelodysplastic syndrome [Not Recovered/Not Resolved]

NARRATIVE: CASE EVENT DATE: 20151112
